FAERS Safety Report 11804379 (Version 1)
Quarter: 2015Q4

REPORT INFORMATION
  Report Type: Spontaneous
  Country: US (occurrence: US)
  Receive Date: 20151204
  Receipt Date: 20151204
  Transmission Date: 20160305
  Serious: No
  Sender: FDA-Public Use
  Company Number: US-BAUSCH-BL-2014-010559

PATIENT
  Sex: Female

DRUGS (1)
  1. XENAZINE [Suspect]
     Active Substance: TETRABENAZINE
     Indication: MUSCLE SPASTICITY
     Dosage: 4 TABLETS TWICE DAILY
     Route: 048
     Dates: start: 201401

REACTIONS (3)
  - Off label use [Unknown]
  - Decreased appetite [Unknown]
  - Decreased activity [Unknown]

NARRATIVE: CASE EVENT DATE: 2014
